FAERS Safety Report 5497365-9 (Version None)
Quarter: 2007Q4

REPORT INFORMATION
  Report Type: 
  Country: None (occurrence: None)
  Receive Date: 20071023
  Receipt Date: 20071011
  Transmission Date: 20080405
  Serious: Yes (Other)
  Sender: FDA-Public Use
  Company Number: GXKR2007GB08797

PATIENT
  Age: 62 Year
  Sex: Male
  Weight: 78 kg

DRUGS (5)
  1. ASPIRIN [Suspect]
     Indication: THROMBOSIS PROPHYLAXIS
     Dosage: 300 MG
  2. HEPARIN [Suspect]
     Indication: THROMBOSIS PROPHYLAXIS
     Dosage: 5000 U; 400 IU/KG
  3. TENECTEPLASE(TENECTEPLASE) UNKNOWN [Suspect]
     Indication: THROMBOSIS PROPHYLAXIS
     Dosage: 80000 U
  4. APROTININ [Concomitant]
  5. PROTAMINE SULFATE [Concomitant]

REACTIONS (3)
  - COAGULATION TEST ABNORMAL [None]
  - POST PROCEDURAL HAEMORRHAGE [None]
  - WOUND SECRETION [None]
